FAERS Safety Report 10230537 (Version 1)
Quarter: 2014Q2

REPORT INFORMATION
  Report Type: Spontaneous
  Country: FR (occurrence: FR)
  Receive Date: 20140611
  Receipt Date: 20140611
  Transmission Date: 20141212
  Serious: Yes (Hospitalization)
  Sender: FDA-Public Use
  Company Number: FR-TEVA-486258ISR

PATIENT
  Age: 79 Year
  Sex: Male

DRUGS (2)
  1. CARBAMAZEPINE TEVA 200MG [Suspect]
     Indication: TRIGEMINAL NEURALGIA
     Dosage: 1000 MILLIGRAM DAILY;
     Route: 048
     Dates: start: 20110513, end: 20110514
  2. PREVISCAN 20MG [Concomitant]

REACTIONS (8)
  - Dermatitis bullous [Recovered/Resolved]
  - Gamma-glutamyltransferase increased [Recovered/Resolved]
  - Purpura [Recovered/Resolved]
  - Urticaria [Recovered/Resolved]
  - Product substitution issue [None]
  - Platelet count decreased [None]
  - Alanine aminotransferase increased [None]
  - International normalised ratio decreased [None]
